FAERS Safety Report 21765739 (Version 1)
Quarter: 2022Q4

REPORT INFORMATION
  Report Type: Spontaneous
  Country: US (occurrence: None)
  Receive Date: 20221221
  Receipt Date: 20221221
  Transmission Date: 20230112
  Serious: Yes (Hospitalization)
  Sender: FDA-Public Use
  Company Number: None

PATIENT
  Sex: Female

DRUGS (2)
  1. EVEROLIMUS [Suspect]
     Active Substance: EVEROLIMUS
     Indication: Endocrine neoplasm malignant
     Dosage: 5MG ONCE DAILY ORAL
     Route: 048
     Dates: start: 202208
  2. EVEROLIMUS [Suspect]
     Active Substance: EVEROLIMUS
     Indication: Endocrine neoplasm malignant

REACTIONS (3)
  - Abdominal pain upper [None]
  - Pruritus [None]
  - Neoplasm [None]
